FAERS Safety Report 8088473-7 (Version None)
Quarter: 2012Q1

REPORT INFORMATION
  Report Type: 
  Country: None (occurrence: None)
  Receive Date: 20120128
  Receipt Date: 20110414
  Transmission Date: 20120608
  Serious: No
  Sender: FDA-Public Use
  Company Number: US-ABBOTT-11P-163-0719949-00

PATIENT
  Sex: Female
  Weight: 69.916 kg

DRUGS (5)
  1. HUMIRA [Suspect]
     Indication: CROHN'S DISEASE
     Dates: start: 20080101, end: 20110201
  2. PROTONIX [Concomitant]
     Indication: CROHN'S DISEASE
  3. ASACOL [Concomitant]
     Indication: CROHN'S DISEASE
     Dates: start: 20110412
  4. HUMIRA [Suspect]
     Dates: start: 20110201, end: 20110412
  5. SEASONAL BIRTH CONTROL [Concomitant]
     Indication: CONTRACEPTION

REACTIONS (2)
  - CROHN'S DISEASE [None]
  - INFECTIOUS MONONUCLEOSIS [None]
